FAERS Safety Report 14190566 (Version 1)
Quarter: 2017Q4

REPORT INFORMATION
  Report Type: Spontaneous
  Country: US (occurrence: US)
  Receive Date: 20171114
  Receipt Date: 20171114
  Transmission Date: 20180321
  Serious: Yes (Disabling)
  Sender: FDA-Public Use
  Company Number: None

PATIENT
  Sex: Female
  Weight: 58.5 kg

DRUGS (2)
  1. IMPLANON [Suspect]
     Active Substance: ETONOGESTREL
     Indication: CONTRACEPTION
     Dosage: ?          QUANTITY:1 IMPLANT;?
     Route: 058
     Dates: start: 20150616, end: 20171003
  2. DAILY VITAMIN [Concomitant]
     Active Substance: VITAMINS

REACTIONS (8)
  - Depression [None]
  - Acne cystic [None]
  - Alopecia [None]
  - Scar [None]
  - Loss of libido [None]
  - Personal relationship issue [None]
  - Anxiety [None]
  - Menstrual disorder [None]

NARRATIVE: CASE EVENT DATE: 20160601
